FAERS Safety Report 6906085-2 (Version None)
Quarter: 2010Q3

REPORT INFORMATION
  Report Type: 
  Country: None (occurrence: None)
  Receive Date: 20100804
  Receipt Date: 20100728
  Transmission Date: 20110219
  Serious: Yes (Other)
  Sender: FDA-Public Use
  Company Number: US-GENENTECH-304780

PATIENT
  Sex: Female
  Weight: 64.399 kg

DRUGS (6)
  1. XOLAIR [Suspect]
     Indication: PRODUCT USED FOR UNKNOWN INDICATION
     Dosage: 300 MG, Q2W
     Dates: start: 20090302
  2. ADVAIR HFA [Concomitant]
     Indication: PRODUCT USED FOR UNKNOWN INDICATION
  3. SYNTHROID [Concomitant]
     Indication: PRODUCT USED FOR UNKNOWN INDICATION
     Dosage: 0.5 A?G, UNK
  4. THEO-DUR [Concomitant]
     Indication: PRODUCT USED FOR UNKNOWN INDICATION
  5. ALBUTEROL [Concomitant]
     Indication: PRODUCT USED FOR UNKNOWN INDICATION
  6. PREDNISONE [Concomitant]
     Indication: PRODUCT USED FOR UNKNOWN INDICATION

REACTIONS (6)
  - ANAPHYLACTOID REACTION [None]
  - DYSPNOEA [None]
  - HEADACHE [None]
  - LYMPHADENOPATHY [None]
  - PRURITUS [None]
  - WHEEZING [None]
